FAERS Safety Report 9107106 (Version 1)
Quarter: 2013Q1

REPORT INFORMATION
  Report Type: Spontaneous
  Country: US (occurrence: US)
  Receive Date: 20130221
  Receipt Date: 20130221
  Transmission Date: 20140127
  Serious: Yes (Other)
  Sender: FDA-Public Use
  Company Number: US-BAXTER-2013BAX005661

PATIENT
  Age: 76 Year
  Sex: Male

DRUGS (1)
  1. DIANEAL LOW CALCIUM (ULTRABAG) [Suspect]
     Indication: PERITONEAL DIALYSIS
     Route: 033
     Dates: start: 20120705

REACTIONS (7)
  - Urinary tract infection [Recovered/Resolved]
  - Scrotal swelling [Unknown]
  - Catheter site abscess [Recovered/Resolved]
  - Catheter site cellulitis [Recovered/Resolved]
  - Dysuria [Unknown]
  - Catheter site infection [Recovered/Resolved]
  - Nosocomial infection [Unknown]
